FAERS Safety Report 20639126 (Version 1)
Quarter: 2022Q1

REPORT INFORMATION
  Report Type: Spontaneous
  Country: US (occurrence: US)
  Receive Date: 20220326
  Receipt Date: 20220326
  Transmission Date: 20220423
  Serious: Yes (Other)
  Sender: FDA-Public Use
  Company Number: US-JNJFOC-20220340086

PATIENT
  Weight: 151.64 kg

DRUGS (1)
  1. INVEGA [Suspect]
     Active Substance: PALIPERIDONE
     Indication: Schizophrenia
     Route: 048

REACTIONS (5)
  - Diabetes mellitus [Unknown]
  - Schizophrenia [Unknown]
  - Sexual dysfunction [Unknown]
  - Insomnia [Unknown]
  - Weight increased [Unknown]
